FAERS Safety Report 7885163-8 (Version None)
Quarter: 2011Q4

REPORT INFORMATION
  Report Type: 
  Country: None (occurrence: None)
  Receive Date: 20111102
  Receipt Date: 20111025
  Transmission Date: 20120403
  Serious: Yes (Hospitalization)
  Sender: FDA-Public Use
  Company Number: IT-ELI_LILLY_AND_COMPANY-IT201110006521

PATIENT
  Sex: Female

DRUGS (8)
  1. LANTUS [Concomitant]
     Indication: DIABETES MELLITUS
     Dosage: 18 IU, QD
     Route: 058
     Dates: start: 20110101, end: 20111013
  2. HUMALOG [Suspect]
     Indication: DIABETES MELLITUS
     Dosage: 58 IU, QD
     Route: 058
     Dates: start: 20110101, end: 20111013
  3. GLIBOMET [Concomitant]
     Indication: DIABETES MELLITUS
     Dosage: 1 DF, QD
     Route: 048
     Dates: start: 20110101, end: 20111013
  4. LEVOTHYROXINE SODIUM [Concomitant]
     Dosage: 1 DF, UNKNOWN
  5. LEVOFLOXACIN [Concomitant]
     Indication: BRONCHITIS
     Dosage: 500 MG, UNKNOWN
     Route: 048
     Dates: start: 20111012, end: 20111013
  6. ENALAPRIL [Concomitant]
     Dosage: 2 DF, UNK
  7. FUROSEMIDE [Concomitant]
     Dosage: 25 MG, UNKNOWN
  8. NITRODERM [Concomitant]
     Dosage: 1 DF, UNKNOWN
     Route: 062

REACTIONS (1)
  - HYPOGLYCAEMIC COMA [None]
